FAERS Safety Report 8070488-6 (Version None)
Quarter: 2012Q1

REPORT INFORMATION
  Report Type: 
  Country: None (occurrence: None)
  Receive Date: 20120125
  Receipt Date: 20111221
  Transmission Date: 20120608
  Serious: Yes (Other)
  Sender: FDA-Public Use
  Company Number: PHHY2011BR115132

PATIENT
  Age: 52 Year
  Sex: Female
  Weight: 71 kg

DRUGS (2)
  1. SANDOSTATIN LAR [Suspect]
  2. SANDOSTATIN [Suspect]
     Indication: NEUROENDOCRINE TUMOUR
     Route: 058
     Dates: start: 20080101

REACTIONS (3)
  - HEPATIC ARTERY EMBOLISM [None]
  - HEPATIC NEOPLASM [None]
  - EMBOLISM VENOUS [None]
